FAERS Safety Report 19003924 (Version 5)
Quarter: 2021Q3

REPORT INFORMATION
  Report Type: Spontaneous
  Country: US (occurrence: US)
  Receive Date: 20210312
  Receipt Date: 20210903
  Transmission Date: 20211014
  Serious: No
  Sender: FDA-Public Use
  Company Number: US-SA-2021SA080618

PATIENT
  Age: 72 Year
  Sex: Female

DRUGS (3)
  1. KEVZARA [Suspect]
     Active Substance: SARILUMAB
     Dosage: 200 MG, QOW
     Route: 058
     Dates: start: 20210515
  2. KEVZARA [Suspect]
     Active Substance: SARILUMAB
     Indication: RHEUMATOID ARTHRITIS
     Dosage: 200 MG, QOW
     Route: 058
     Dates: start: 202102, end: 2021
  3. KEVZARA [Suspect]
     Active Substance: SARILUMAB
     Dosage: 200 MG, QOW
     Route: 058
     Dates: start: 202105

REACTIONS (5)
  - Injection site swelling [Recovered/Resolved]
  - Urinary tract infection [Unknown]
  - Therapy interrupted [Unknown]
  - Injection site erythema [Recovered/Resolved]
  - Injection site cyst [Recovered/Resolved]

NARRATIVE: CASE EVENT DATE: 2021
